FAERS Safety Report 25042267 (Version 1)
Quarter: 2025Q1

REPORT INFORMATION
  Report Type: Spontaneous
  Country: US (occurrence: US)
  Receive Date: 20250305
  Receipt Date: 20250305
  Transmission Date: 20250409
  Serious: Yes (Death)
  Sender: SECURA BIO
  Company Number: US-SECURA BIO, INC.-SECUR-2025-US002065

PATIENT
  Age: 53 Year
  Sex: Female

DRUGS (2)
  1. COPIKTRA [Suspect]
     Active Substance: DUVELISIB
     Indication: Angioimmunoblastic T-cell lymphoma
     Dosage: 25 MILLIGRAM, BID
     Route: 048
     Dates: start: 202411
  2. COPIKTRA [Suspect]
     Active Substance: DUVELISIB
     Indication: Idiopathic urticaria

REACTIONS (2)
  - Death [Fatal]
  - Product use in unapproved indication [Unknown]

NARRATIVE: CASE EVENT DATE: 20250218
